FAERS Safety Report 16151058 (Version 1)
Quarter: 2019Q2

REPORT INFORMATION
  Report Type: Spontaneous
  Country: US (occurrence: US)
  Receive Date: 20190403
  Receipt Date: 20190403
  Transmission Date: 20190711
  Serious: No
  Sender: FDA-Public Use
  Company Number: US-ALEMBIC PHARMACUETICALS LIMITED-2019SCAL000175

PATIENT

DRUGS (1)
  1. VALSARTAN. [Suspect]
     Active Substance: VALSARTAN
     Indication: HYPERTENSION
     Dosage: UNK

REACTIONS (9)
  - Dysphonia [Unknown]
  - Wheezing [Unknown]
  - Muscle spasms [Unknown]
  - Contusion [Unknown]
  - Speech disorder [Unknown]
  - Dyspnoea [Unknown]
  - Throat tightness [Unknown]
  - Headache [Unknown]
  - Dizziness [Unknown]
